FAERS Safety Report 20236962 (Version 1)
Quarter: 2021Q4

REPORT INFORMATION
  Report Type: Spontaneous
  Country: JP (occurrence: JP)
  Receive Date: 20211228
  Receipt Date: 20211228
  Transmission Date: 20220303
  Serious: Yes (Other)
  Sender: FDA-Public Use
  Company Number: JP-PFIZER INC-202101781292

PATIENT
  Age: 62 Year
  Sex: Female

DRUGS (3)
  1. SPIRONOLACTONE [Suspect]
     Active Substance: SPIRONOLACTONE
     Dosage: UNK
  2. ISOLEUCINE\LEUCINE\VALINE [Suspect]
     Active Substance: ISOLEUCINE\LEUCINE\VALINE
     Dosage: UNK
  3. LACTULOSE [Suspect]
     Active Substance: LACTULOSE
     Dosage: UNK

REACTIONS (1)
  - Pneumonia [Recovering/Resolving]
